FAERS Safety Report 4901745-7 (Version None)
Quarter: 2006Q1

REPORT INFORMATION
  Report Type: 
  Country: None (occurrence: None)
  Receive Date: 20060206
  Receipt Date: 20060124
  Transmission Date: 20060701
  Serious: Yes (Hospitalization, Other)
  Sender: FDA-Public Use
  Company Number: US-AMGEN-US166243

PATIENT
  Sex: Female
  Weight: 97.6 kg

DRUGS (12)
  1. ARANESP [Suspect]
     Indication: ANAEMIA OF MALIGNANT DISEASE
     Route: 058
     Dates: start: 20051202, end: 20051230
  2. OXYCONTIN [Concomitant]
     Route: 048
     Dates: start: 20051201
  3. OXYCODONE [Concomitant]
     Dates: start: 20051118
  4. KEPPRA [Concomitant]
     Route: 048
  5. HYDROCHLOROTHIAZIDE [Concomitant]
     Route: 048
  6. COZAAR [Concomitant]
     Route: 048
  7. HUMALOG [Concomitant]
  8. LANTUS [Concomitant]
  9. ALBUTEROL [Concomitant]
     Route: 055
  10. TUSSIONEX [Concomitant]
  11. HUMIBID-OTC [Concomitant]
  12. NEXIUM [Concomitant]
     Route: 048

REACTIONS (5)
  - DYSPNOEA [None]
  - GASTROENTERITIS BACTERIAL [None]
  - GASTROINTESTINAL HAEMORRHAGE [None]
  - LEUKOCYTOCLASTIC VASCULITIS [None]
  - OEDEMA PERIPHERAL [None]
